FAERS Safety Report 10704884 (Version 1)
Quarter: 2015Q1

REPORT INFORMATION
  Report Type: Spontaneous
  Country: US (occurrence: US)
  Receive Date: 20150112
  Receipt Date: 20150112
  Transmission Date: 20150721
  Serious: Yes (Other)
  Sender: FDA-Public Use
  Company Number: US-ABBVIE-15P-163-1330863-00

PATIENT
  Age: 12 Year
  Sex: Female

DRUGS (3)
  1. DIVALPROEX SODIUM. [Suspect]
     Active Substance: DIVALPROEX SODIUM
     Indication: COMPLEX PARTIAL SEIZURES
     Dosage: BEGAN AT 10 YEARS, 7 MONTHS OF AGE
     Route: 065
  2. DIVALPROEX SODIUM. [Suspect]
     Active Substance: DIVALPROEX SODIUM
     Route: 065
  3. DIVALPROEX SODIUM. [Suspect]
     Active Substance: DIVALPROEX SODIUM
     Route: 065

REACTIONS (4)
  - Weight decreased [Recovered/Resolved]
  - Delayed puberty [Recovered/Resolved]
  - Hypothalamo-pituitary disorder [Recovered/Resolved]
  - Growth retardation [Recovered/Resolved]
